FAERS Safety Report 7494617-8 (Version None)
Quarter: 2011Q2

REPORT INFORMATION
  Report Type: 
  Country: None (occurrence: None)
  Receive Date: 20110520
  Receipt Date: 20110511
  Transmission Date: 20111010
  Serious: Yes (Other)
  Sender: FDA-Public Use
  Company Number: BR-AMGEN-BRASP2011000632

PATIENT
  Age: 61 Year
  Sex: Female
  Weight: 57 kg

DRUGS (5)
  1. ASPIRIN [Concomitant]
     Dosage: UNK
     Dates: start: 20101101
  2. LANZ [Concomitant]
     Dosage: UNK
     Dates: start: 20100101
  3. ENBREL [Suspect]
     Indication: RHEUMATOID ARTHRITIS
     Dosage: 50 MG, WEEKLY  (TWO APPLICATIONS OF 25MG 2X/WEEK)
     Route: 058
     Dates: start: 20100601
  4. OVESTRION [Concomitant]
     Dosage: UNK
     Route: 067
     Dates: start: 20060101
  5. ARCOXIA [Concomitant]
     Indication: PAIN
     Dosage: 90 MG, UNK

REACTIONS (9)
  - ARTHRALGIA [None]
  - LISTLESS [None]
  - PAIN IN EXTREMITY [None]
  - OEDEMA PERIPHERAL [None]
  - PAIN [None]
  - POOR QUALITY DRUG ADMINISTERED [None]
  - JOINT SWELLING [None]
  - FATIGUE [None]
  - RASH MACULAR [None]
